FAERS Safety Report 5913949-5 (Version None)
Quarter: 2008Q4

REPORT INFORMATION
  Report Type: 
  Country: None (occurrence: None)
  Receive Date: 20081009
  Receipt Date: 20080929
  Transmission Date: 20090506
  Serious: Yes (Death)
  Sender: FDA-Public Use
  Company Number: US-MERCK-0809USA04986

PATIENT
  Age: 58 Year
  Sex: Male

DRUGS (2)
  1. PRIMAXIN [Suspect]
     Indication: POST PROCEDURAL INFECTION
     Route: 065
  2. VANCOMYCIN [Concomitant]
     Indication: POST PROCEDURAL INFECTION
     Route: 065

REACTIONS (6)
  - ALANINE AMINOTRANSFERASE INCREASED [None]
  - ASPARTATE AMINOTRANSFERASE INCREASED [None]
  - ENTEROCOCCAL INFECTION [None]
  - FLATULENCE [None]
  - HYPOTENSION [None]
  - MENTAL STATUS CHANGES [None]
